FAERS Safety Report 12340930 (Version 1)
Quarter: 2016Q2

REPORT INFORMATION
  Report Type: Spontaneous
  Country: US (occurrence: US)
  Receive Date: 20160506
  Receipt Date: 20160506
  Transmission Date: 20160815
  Serious: No
  Sender: FDA-Public Use
  Company Number: US-PFIZER INC-2016202609

PATIENT
  Sex: Female
  Weight: 61 kg

DRUGS (3)
  1. ATORVASTATIN CALCIUM. [Suspect]
     Active Substance: ATORVASTATIN CALCIUM
     Indication: BLOOD CHOLESTEROL INCREASED
     Dosage: 40 MG, 1X/DAY
     Route: 048
     Dates: start: 201412, end: 201412
  2. AZOPT [Concomitant]
     Active Substance: BRINZOLAMIDE
     Indication: GLAUCOMA
     Dosage: 10 MG, 2X/DAY ONE DROP IN EACH EYE TWICE A DAY
     Route: 047
  3. LUMIGAN [Concomitant]
     Active Substance: BIMATOPROST
     Indication: GLAUCOMA
     Dosage: 2.5 ML, 1X/DAY ONE DROP EACH EYE IN THE EVENING
     Route: 047

REACTIONS (3)
  - Memory impairment [Recovered/Resolved]
  - Drug dose omission [Unknown]
  - Panic reaction [Unknown]

NARRATIVE: CASE EVENT DATE: 2014
